FAERS Safety Report 10201005 (Version 2)
Quarter: 2014Q2

REPORT INFORMATION
  Report Type: Spontaneous
  Country: JP (occurrence: JP)
  Receive Date: 20140528
  Receipt Date: 20140528
  Transmission Date: 20141212
  Serious: Yes (Other)
  Sender: FDA-Public Use
  Company Number: JP-NOVOPROD-403865

PATIENT
  Age: 73 Year
  Sex: Male
  Weight: 73 kg

DRUGS (2)
  1. VICTOZA HIKACHU INJECTION [Suspect]
     Indication: TYPE 2 DIABETES MELLITUS
     Dosage: 0.3 MG/MORNING
     Route: 058
     Dates: start: 20110314
  2. VICTOZA HIKACHU INJECTION [Suspect]
     Dosage: 0.6 MG
     Route: 058
     Dates: start: 20110324, end: 20140220

REACTIONS (1)
  - Ileus paralytic [Recovered/Resolved]
